FAERS Safety Report 9395771 (Version 4)
Quarter: 2013Q4

REPORT INFORMATION
  Report Type: Spontaneous
  Country: FR (occurrence: FR)
  Receive Date: 20130711
  Receipt Date: 20131007
  Transmission Date: 20140711
  Serious: Yes (Hospitalization, Other)
  Sender: FDA-Public Use
  Company Number: FR-PFIZER INC-2013199895

PATIENT
  Age: 36 Year
  Sex: Female
  Weight: 49 kg

DRUGS (2)
  1. CYTOTEC [Suspect]
     Indication: ABORTION INDUCED
     Dosage: 2 DF, 2X/DAY
     Route: 060
     Dates: start: 20130404, end: 20130404
  2. MIFEGYNE [Concomitant]
     Indication: ABORTION INDUCED
     Dosage: 3 DF, SINGLE
     Route: 048
     Dates: start: 20130402, end: 20130402

REACTIONS (10)
  - Off label use [Unknown]
  - Feeling abnormal [Recovering/Resolving]
  - Activities of daily living impaired [Unknown]
  - Endometritis [Recovering/Resolving]
  - Tremor [Recovering/Resolving]
  - Muscle contractions involuntary [Recovering/Resolving]
  - Rectal discharge [Recovering/Resolving]
  - Agitation [Recovering/Resolving]
  - Hepatic enzyme increased [Recovered/Resolved]
  - Pain [Recovering/Resolving]
